FAERS Safety Report 4759519-6 (Version None)
Quarter: 2005Q3

REPORT INFORMATION
  Report Type: 
  Country: None (occurrence: None)
  Receive Date: 20050831
  Receipt Date: 20050822
  Transmission Date: 20060218
  Serious: Yes (Other)
  Sender: FDA-Public Use
  Company Number: 163-20785-05080243

PATIENT
  Sex: Male

DRUGS (2)
  1. THALOMID [Suspect]
     Indication: MYELODYSPLASTIC SYNDROME
     Dosage: 100 MG, DAILY, ORAL
     Route: 048
     Dates: start: 20031105, end: 20040101
  2. PROCRIT [Concomitant]

REACTIONS (4)
  - BACK PAIN [None]
  - FEELING ABNORMAL [None]
  - HYPOAESTHESIA [None]
  - UPPER LIMB FRACTURE [None]
